FAERS Safety Report 6912798-9 (Version None)
Quarter: 2010Q3

REPORT INFORMATION
  Report Type: 
  Country: None (occurrence: None)
  Receive Date: 20100806
  Receipt Date: 20081211
  Transmission Date: 20110219
  Serious: No
  Sender: FDA-Public Use
  Company Number: US-PFIZER INC-2008152544

PATIENT
  Sex: Female

DRUGS (3)
  1. GLIPIZIDE [Suspect]
  2. GLIPIZIDE [Suspect]
     Dosage: UNK
     Dates: start: 20081101
  3. METFORMIN HYDROCHLORIDE [Concomitant]
     Dosage: UNK

REACTIONS (1)
  - BLOOD GLUCOSE FLUCTUATION [None]
